FAERS Safety Report 10255705 (Version 2)
Quarter: 2014Q2

REPORT INFORMATION
  Report Type: Report from Study
  Country: US (occurrence: None)
  Receive Date: 20140620
  Receipt Date: 20140620
  Transmission Date: 20141212
  Serious: Yes (Hospitalization)
  Sender: FDA-Public Use
  Company Number: 2375202

PATIENT
  Age: 9 Year
  Sex: Female

DRUGS (12)
  1. CYTARABINE [Suspect]
     Indication: B PRECURSOR TYPE ACUTE LEUKAEMIA
     Dosage: NOT REPORTED, NOT REPORTED (UNKNOWN), UNKNOWN
     Dates: start: 20140109
  2. METHOTREXATE INJECTION (METHOTREXATE) [Suspect]
     Indication: B PRECURSOR TYPE ACUTE LEUKAEMIA
     Dosage: NOT REPORTED, NOT REPORTED (UNKNOWN), UNKNOWN
     Dates: start: 20140109
  3. VINCRISTINE SULFATE INJECTION, USP, 1MG/ML (VINCRISTINE SULFATE) [Suspect]
     Indication: B PRECURSOR TYPE ACUTE LEUKAEMIA
     Dosage: NOT REPORTED, NOT REPORTED (UNKNOWN), UNKNOWN
     Dates: start: 20140109
  4. CLOFARABINE [Suspect]
     Indication: B PRECURSOR TYPE ACUTE LEUKAEMIA
     Dosage: NOT REPORTED, NOT REPORTED (UNKNOWN), UNKNOWN
     Dates: start: 20140109
  5. CLOFARABINE [Suspect]
     Dosage: NOT REPORTED, NOT REPORTED (UNKNOWN), UNKNOWN
     Dates: start: 20140109
  6. CYCLOPHOSPHAMIDE [Suspect]
     Indication: B PRECURSOR TYPE ACUTE LEUKAEMIA
     Dosage: NOT REPORTED, NOT REPORTED (UNKNOWN), UNKNOWN
     Dates: start: 20140109
  7. CYCLOPHOSPHAMIDE [Suspect]
     Dosage: NOT REPORTED, NOT REPORTED (UNKNOWN), UNKNOWN
     Dates: start: 20140109
  8. ETOPOSIDE [Suspect]
     Indication: B PRECURSOR TYPE ACUTE LEUKAEMIA
     Dosage: NOT REPORTED, NOT REPORTED (UNKNOWN), UNKNOWN
     Dates: start: 20140109
  9. ETOPOSIDE [Suspect]
     Dosage: NOT REPORTED, NOT REPORTED (UNKNOWN), UNKNOWN
     Dates: start: 20140109
  10. DEXAMETHASONE [Concomitant]
  11. MERCAPTOPURINE [Concomitant]
  12. PEGASPARGASE [Concomitant]

REACTIONS (19)
  - Urinary tract infection [None]
  - Dehydration [None]
  - Septic shock [None]
  - Fatigue [None]
  - Decreased appetite [None]
  - Headache [None]
  - Suprapubic pain [None]
  - Pseudomonas test positive [None]
  - Bacterial test positive [None]
  - Hypotension [None]
  - Tachycardia [None]
  - Pyrexia [None]
  - Hypokalaemia [None]
  - Vomiting [None]
  - Nausea [None]
  - Hypersensitivity [None]
  - Abdominal pain [None]
  - Neutropenia [None]
  - Hypertension [None]
